FAERS Safety Report 19867134 (Version 1)
Quarter: 2021Q3

REPORT INFORMATION
  Report Type: Spontaneous
  Country: US (occurrence: US)
  Receive Date: 20210921
  Receipt Date: 20210921
  Transmission Date: 20211014
  Serious: No
  Sender: FDA-Public Use
  Company Number: US-BRAINTREE LABORATORIES, INC.-2021BTE00007

PATIENT
  Age: 64 Year
  Sex: Female
  Weight: 77.1 kg

DRUGS (1)
  1. SUPREP BOWEL PREP [Suspect]
     Active Substance: MAGNESIUM SULFATE\POTASSIUM SULFATE\SODIUM SULFATE
     Indication: COLONOSCOPY
     Dosage: {1 X 6 OZ. BOTTLE, 1X
     Route: 048
     Dates: start: 20210105, end: 20210105

REACTIONS (13)
  - Dizziness [Recovered/Resolved]
  - Heart rate increased [Recovered/Resolved]
  - Nasal oedema [Recovered/Resolved]
  - Nausea [Recovered/Resolved]
  - Muscle tightness [Recovered/Resolved]
  - Lip swelling [Recovered/Resolved]
  - Fatigue [Recovered/Resolved]
  - Balance disorder [Recovered/Resolved]
  - Intentional product use issue [Recovered/Resolved]
  - Asthenia [Recovered/Resolved]
  - Pharyngeal disorder [Recovered/Resolved]
  - Chest pain [Recovered/Resolved]
  - Throat tightness [Recovered/Resolved]

NARRATIVE: CASE EVENT DATE: 20210105
